FAERS Safety Report 5963759-8 (Version None)
Quarter: 2008Q4

REPORT INFORMATION
  Report Type: 
  Country: None (occurrence: None)
  Receive Date: 20081120
  Receipt Date: 20081114
  Transmission Date: 20090506
  Serious: Yes (Other)
  Sender: FDA-Public Use
  Company Number: POMP-1000375

PATIENT
  Age: 16 Month
  Sex: Male

DRUGS (1)
  1. MYOZYME [Suspect]
     Indication: GLYCOGEN STORAGE DISEASE TYPE II
     Dosage: 20 MG/KG Q2W INTRAVENOUS
     Route: 042
     Dates: start: 20080301

REACTIONS (4)
  - HYPOKINESIA [None]
  - MUSCULAR WEAKNESS [None]
  - PYREXIA [None]
  - SOCIAL AVOIDANT BEHAVIOUR [None]
